FAERS Safety Report 9887542 (Version 1)
Quarter: 2013Q4

REPORT INFORMATION
  Report Type: Spontaneous
  Country: US (occurrence: None)
  Receive Date: 20131223
  Receipt Date: 20131223
  Transmission Date: 20140711
  Serious: Yes (Other)
  Sender: FDA-Public Use
  Company Number: 220819LEO

PATIENT
  Sex: Male

DRUGS (1)
  1. PICATO [Suspect]
     Dosage: ABOUT 1 WEEK AGO, GEL, TOPICAL

REACTIONS (1)
  - No adverse event [None]
